FAERS Safety Report 10436030 (Version 1)
Quarter: 2014Q3

REPORT INFORMATION
  Report Type: Spontaneous
  Country: US (occurrence: US)
  Receive Date: 20140908
  Receipt Date: 20140908
  Transmission Date: 20150326
  Serious: Yes (Other)
  Sender: FDA-Public Use
  Company Number: US-RB-068395-14

PATIENT
  Sex: Male

DRUGS (1)
  1. MUCINEX MAXIMUM STRENGTH [Suspect]
     Active Substance: GUAIFENESIN
     Indication: PRODUCT USED FOR UNKNOWN INDICATION
     Dosage: BEGAN TAKING DRUG ABOUT 3 MONTHS BEFORE THE DAY OF REPORTING. LAST TOOK THE DRUG LAST WEEK.
     Route: 065

REACTIONS (4)
  - Headache [Recovered/Resolved]
  - Hot flush [Recovered/Resolved]
  - Muscle spasms [Recovered/Resolved]
  - Incorrect drug administration duration [Recovered/Resolved]
